FAERS Safety Report 4810582-3 (Version None)
Quarter: 2005Q4

REPORT INFORMATION
  Report Type: 
  Country: None (occurrence: None)
  Receive Date: 20051025
  Receipt Date: 20051025
  Transmission Date: 20060501
  Serious: Yes (Hospitalization)
  Sender: FDA-Public Use
  Company Number: None

PATIENT
  Age: 76 Year
  Sex: Male
  Weight: 97 kg

DRUGS (9)
  1. WARFARIN 5MG BRISTOL MYERS SQUIBB [Suspect]
     Indication: ATRIAL FIBRILLATION
     Dosage: 5MG DAILY PO
     Route: 048
     Dates: start: 20031007, end: 20051024
  2. DILTIAZEM [Concomitant]
  3. FUROSEMIDE [Concomitant]
  4. LISINOPRIL [Concomitant]
  5. LORAZEPAM [Concomitant]
  6. SERTRALINE HCL [Concomitant]
  7. TERAZOSIN HCL [Concomitant]
  8. SALMETEROL [Concomitant]
  9. ALBUTEROL [Concomitant]

REACTIONS (7)
  - DIARRHOEA [None]
  - DUODENITIS [None]
  - FAECES DISCOLOURED [None]
  - GASTRITIS [None]
  - GASTROINTESTINAL HAEMORRHAGE [None]
  - OCCULT BLOOD POSITIVE [None]
  - VOMITING [None]
